FAERS Safety Report 25682393 (Version 2)
Quarter: 2025Q4

REPORT INFORMATION
  Report Type: Spontaneous
  Country: TR (occurrence: TR)
  Receive Date: 20250814
  Receipt Date: 20251003
  Transmission Date: 20260117
  Serious: Yes (Death, Life-Threatening, Hospitalization)
  Sender: TEVA
  Company Number: TR-TEVA-VS-3360713

PATIENT
  Age: 34 Year
  Sex: Female

DRUGS (11)
  1. FILGRASTIM [Suspect]
     Active Substance: FILGRASTIM
     Indication: Neutropenia
     Route: 065
     Dates: start: 202501
  2. FOLIC ACID [Suspect]
     Active Substance: FOLIC ACID
     Indication: Prophylaxis
     Route: 065
  3. CYTARABINE [Suspect]
     Active Substance: CYTARABINE
     Indication: Acute lymphocytic leukaemia
     Dosage: SECOND CYCLE
     Route: 065
     Dates: start: 20250106
  4. CYTARABINE [Suspect]
     Active Substance: CYTARABINE
     Indication: Acute lymphocytic leukaemia
     Route: 065
  5. COLISTIN [Concomitant]
     Active Substance: COLISTIN
     Indication: Antibiotic therapy
     Route: 065
     Dates: start: 202501
  6. PREDNISOLONE [Suspect]
     Active Substance: PREDNISOLONE
     Indication: Immunosuppressant drug therapy
     Route: 065
     Dates: start: 20250106
  7. PREDNISOLONE [Suspect]
     Active Substance: PREDNISOLONE
     Indication: Immunosuppressant drug therapy
     Dosage: RECEIVED PULSE PREDNISOLONE THERAPY
     Route: 065
     Dates: start: 202501
  8. IMIPENEM [Concomitant]
     Active Substance: IMIPENEM
     Indication: Antibiotic therapy
     Route: 065
     Dates: start: 202501
  9. CEFOPERAZONE\SULBACTAM [Suspect]
     Active Substance: CEFOPERAZONE\SULBACTAM
     Indication: Antibiotic therapy
     Route: 065
     Dates: start: 202501
  10. METHOTREXATE [Suspect]
     Active Substance: METHOTREXATE
     Indication: Acute lymphocytic leukaemia
     Dosage: TOTAL 3 DOSES
     Route: 037
  11. METHOTREXATE [Suspect]
     Active Substance: METHOTREXATE
     Indication: Acute lymphocytic leukaemia
     Dosage: SECOND CYCLE
     Route: 065
     Dates: start: 20250106

REACTIONS (11)
  - SJS-TEN overlap [Fatal]
  - Hypernatraemia [Unknown]
  - Cardiac arrest [Unknown]
  - Acute kidney injury [Unknown]
  - Speech disorder [Unknown]
  - Dizziness [Unknown]
  - Respiratory arrest [Unknown]
  - Nephropathy toxic [Unknown]
  - Multiple organ dysfunction syndrome [Fatal]
  - Drug ineffective [Fatal]
  - Neutropenia [Unknown]

NARRATIVE: CASE EVENT DATE: 20250101
